FAERS Safety Report 6255412-0 (Version None)
Quarter: 2009Q3

REPORT INFORMATION
  Report Type: 
  Country: None (occurrence: None)
  Receive Date: 20090702
  Receipt Date: 20090630
  Transmission Date: 20100115
  Serious: Yes (Other)
  Sender: FDA-Public Use
  Company Number: US-ROXANE LABORATORIES, INC.-2009-RO-00647RO

PATIENT

DRUGS (1)
  1. FUROSEMIDE INTENSOL [Suspect]

REACTIONS (1)
  - ADVERSE DRUG REACTION [None]
